FAERS Safety Report 10801269 (Version 2)
Quarter: 2015Q1

REPORT INFORMATION
  Report Type: Spontaneous
  Country: FR (occurrence: FR)
  Receive Date: 20150217
  Receipt Date: 20150220
  Transmission Date: 20150721
  Serious: No
  Sender: FDA-Public Use
  Company Number: FR-009507513-1502FRA003949

PATIENT
  Age: 70 Year
  Sex: Female

DRUGS (4)
  1. DAFALGAN [Concomitant]
     Active Substance: ACETAMINOPHEN
     Dosage: UNK
  2. SINEMET [Suspect]
     Active Substance: CARBIDOPA\LEVODOPA
     Dosage: DAILY DOSE: 2 DF IN THE MORNING, 1 DF AT NOON, 1.5 DF AT 04H00 PM AND 1 DF AT 08H00 PM/ 550MG/55
     Route: 048
     Dates: start: 201302
  3. METFORMIN [Concomitant]
     Active Substance: METFORMIN HYDROCHLORIDE
     Dosage: UNK
  4. AMAREL [Concomitant]
     Active Substance: GLIMEPIRIDE
     Dosage: UNK

REACTIONS (5)
  - Muscle strain [Unknown]
  - Restless legs syndrome [Unknown]
  - Wrong technique in drug usage process [Unknown]
  - Musculoskeletal stiffness [Unknown]
  - Insomnia [Unknown]

NARRATIVE: CASE EVENT DATE: 201302
